FAERS Safety Report 24439589 (Version 1)
Quarter: 2024Q4

REPORT INFORMATION
  Report Type: Spontaneous
  Country: PL (occurrence: PL)
  Receive Date: 20241015
  Receipt Date: 20241015
  Transmission Date: 20250115
  Serious: Yes (Life-Threatening, Hospitalization)
  Sender: PURDUE
  Company Number: PL-PURDUE-USA-2024-0312533

PATIENT
  Age: 67 Year
  Sex: Female
  Weight: 80 kg

DRUGS (1)
  1. MORPHINE SULFATE [Suspect]
     Active Substance: MORPHINE SULFATE
     Indication: Product used for unknown indication
     Dosage: UNKNOWN DOSE
     Route: 048

REACTIONS (3)
  - Hypotonia [Recovering/Resolving]
  - Loss of consciousness [Recovering/Resolving]
  - Bradycardia [Recovering/Resolving]
